FAERS Safety Report 25652314 (Version 1)
Quarter: 2025Q3

REPORT INFORMATION
  Report Type: Spontaneous
  Country: US (occurrence: US)
  Receive Date: 20250807
  Receipt Date: 20250807
  Transmission Date: 20251021
  Serious: Yes (Death, Life-Threatening, Hospitalization, Other)
  Sender: BOEHRINGER INGELHEIM
  Company Number: US-Komodo Health-a23aa000009Jg4nAAC

PATIENT
  Sex: Male

DRUGS (1)
  1. OFEV [Suspect]
     Active Substance: NINTEDANIB
     Indication: Interstitial lung disease

REACTIONS (8)
  - Sepsis [Fatal]
  - Dyspnoea [Unknown]
  - Liver disorder [Unknown]
  - Decreased appetite [Unknown]
  - Yellow skin [Unknown]
  - Chromaturia [Unknown]
  - Urinary tract infection [Unknown]
  - Pancreatic mass [Unknown]
